FAERS Safety Report 25451366 (Version 2)
Quarter: 2025Q3

REPORT INFORMATION
  Report Type: Spontaneous
  Country: EU (occurrence: EU)
  Receive Date: 20250618
  Receipt Date: 20250803
  Transmission Date: 20251021
  Serious: Yes (Hospitalization, Other)
  Sender: ALEXION PHARMACEUTICALS
  Company Number: EU-SA-2025SA028626

PATIENT
  Age: 2 Month
  Sex: Male

DRUGS (3)
  1. NIRSEVIMAB [Suspect]
     Active Substance: NIRSEVIMAB
     Indication: Antiviral prophylaxis
     Dates: start: 20241027, end: 20241027
  2. NIRSEVIMAB [Suspect]
     Active Substance: NIRSEVIMAB
  3. Vigantol [Concomitant]
     Indication: Supplementation therapy
     Dosage: 1 DF, QD (1 DROP/DAY (667 IU/DAY))

REACTIONS (14)
  - Respiratory syncytial virus bronchiolitis [Recovered/Resolved]
  - Rhinorrhoea [Recovered/Resolved]
  - Vomiting [Recovered/Resolved]
  - Pyrexia [Recovered/Resolved]
  - Productive cough [Recovered/Resolved]
  - Drug ineffective [Recovering/Resolving]
  - Eating disorder [Recovered/Resolved]
  - Dyspnoea [Recovered/Resolved]
  - Respiratory syncytial virus infection [Recovered/Resolved]
  - Auscultation [Recovered/Resolved]
  - Wheezing [Recovered/Resolved]
  - Tachypnoea [Recovered/Resolved]
  - Breath sounds abnormal [Recovered/Resolved]
  - Use of accessory respiratory muscles [Recovered/Resolved]

NARRATIVE: CASE EVENT DATE: 20250101
